FAERS Safety Report 10183267 (Version 2)
Quarter: 2014Q2

REPORT INFORMATION
  Report Type: Report from Study
  Country: CA (occurrence: CA)
  Receive Date: 20140520
  Receipt Date: 20140520
  Transmission Date: 20141212
  Serious: Yes (Hospitalization)
  Sender: FDA-Public Use
  Company Number: CA-JNJFOC-20140410675

PATIENT
  Age: 24 Year
  Sex: Female
  Weight: 69 kg

DRUGS (5)
  1. REMICADE [Suspect]
     Indication: CROHN^S DISEASE
     Route: 042
     Dates: start: 20130117
  2. REMICADE [Suspect]
     Indication: CROHN^S DISEASE
     Route: 042
     Dates: start: 20130101
  3. TYLENOL1 [Concomitant]
     Indication: PAIN
     Route: 065
  4. AZATHIOPRINE [Concomitant]
     Route: 048
  5. BUSCOPAN [Concomitant]
     Route: 065

REACTIONS (1)
  - Scar [Unknown]
